FAERS Safety Report 5278462-X (Version None)
Quarter: 2007Q1

REPORT INFORMATION
  Report Type: 
  Country: None (occurrence: None)
  Receive Date: 20070328
  Receipt Date: 20070320
  Transmission Date: 20070707
  Serious: Yes (Hospitalization, Other)
  Sender: FDA-Public Use
  Company Number: JP-PFIZER INC-2007023510

PATIENT
  Age: 17 Year
  Sex: Female

DRUGS (9)
  1. ATARAX [Suspect]
     Route: 048
     Dates: start: 20070319, end: 20070319
  2. TAKEPRON [Concomitant]
     Indication: VOMITING PSYCHOGENIC
     Route: 048
  3. LEVOTOMIN [Concomitant]
     Route: 048
  4. TRANSAMIN [Concomitant]
     Route: 048
  5. LORAZEPAM [Concomitant]
     Route: 048
  6. VOLTAREN [Concomitant]
     Route: 048
  7. MUCODYNE [Concomitant]
     Route: 048
  8. PRIMPERAN INJ [Concomitant]
     Indication: VOMITING PSYCHOGENIC
     Route: 048
  9. FLAVERIC [Concomitant]

REACTIONS (2)
  - COMA [None]
  - OVERDOSE [None]
